FAERS Safety Report 10219186 (Version 3)
Quarter: 2014Q3

REPORT INFORMATION
  Report Type: Report from Study
  Country: JP (occurrence: JP)
  Receive Date: 20140605
  Receipt Date: 20140724
  Transmission Date: 20150326
  Serious: Yes (Life-Threatening, Hospitalization)
  Sender: FDA-Public Use
  Company Number: JP-ABBVIE-14P-087-1243050-00

PATIENT
  Age: 23 Year
  Sex: Male
  Weight: 51 kg

DRUGS (4)
  1. HUMIRA [Suspect]
     Active Substance: ADALIMUMAB
     Indication: CROHN^S DISEASE
     Route: 058
     Dates: start: 20120723, end: 20120723
  2. ENTERAL NUTRITION THERAPY [Concomitant]
     Indication: CROHN^S DISEASE
     Dates: start: 20120723
  3. MESALAZINE [Concomitant]
     Active Substance: MESALAMINE
  4. MESALAZINE [Concomitant]
     Active Substance: MESALAMINE
     Indication: CROHN^S DISEASE
     Route: 048

REACTIONS (6)
  - Portal vein thrombosis [Recovering/Resolving]
  - Abdominal abscess [Recovering/Resolving]
  - Adverse event [Unknown]
  - Diarrhoea [Unknown]
  - Pyrexia [Recovering/Resolving]
  - Abdominal pain [Unknown]

NARRATIVE: CASE EVENT DATE: 20120725
